FAERS Safety Report 9667635 (Version 1)
Quarter: 2013Q4

REPORT INFORMATION
  Report Type: Spontaneous
  Country: US (occurrence: US)
  Receive Date: 20131101
  Receipt Date: 20131101
  Transmission Date: 20140711
  Serious: No
  Sender: FDA-Public Use
  Company Number: US-SAVIENT-2012S1000058

PATIENT
  Age: 64 Year
  Sex: Male
  Weight: 147.42 kg

DRUGS (12)
  1. KRYSTEXXA INJECTION [Suspect]
     Indication: GOUT
     Route: 042
     Dates: start: 20120418, end: 20120418
  2. KRYSTEXXA INJECTION [Suspect]
     Indication: GOUT
     Route: 042
     Dates: start: 2012, end: 2012
  3. KRYSTEXXA INJECTION [Suspect]
     Indication: GOUT
     Route: 042
     Dates: start: 2012, end: 2012
  4. KRYSTEXXA INJECTION [Suspect]
     Indication: GOUT
     Route: 042
     Dates: start: 20120613, end: 20120613
  5. ALL OTHER THERAPEUTIC PRODUCTS [Suspect]
     Indication: PREMEDICATION
     Dates: start: 20120418, end: 20120418
  6. ALL OTHER THERAPEUTIC PRODUCTS [Suspect]
     Indication: PREMEDICATION
     Dates: start: 2012, end: 2012
  7. ALL OTHER THERAPEUTIC PRODUCTS [Suspect]
     Indication: PREMEDICATION
     Dates: start: 2012, end: 2012
  8. ALL OTHER THERAPEUTIC PRODUCTS [Suspect]
     Indication: PREMEDICATION
     Dates: start: 20120613, end: 20120613
  9. IMMUNOSUPPRESSANTS [Concomitant]
     Indication: HEART TRANSPLANT
  10. PREDNISONE [Concomitant]
     Indication: PRODUCT USED FOR UNKNOWN INDICATION
  11. ANTIHYPERTENSIVES [Concomitant]
     Indication: BLOOD PRESSURE ABNORMAL
  12. ULORIC [Concomitant]
     Indication: PRODUCT USED FOR UNKNOWN INDICATION

REACTIONS (6)
  - Somnolence [Not Recovered/Not Resolved]
  - Dizziness [Unknown]
  - Asthenia [Unknown]
  - Abasia [Recovered/Resolved]
  - Nausea [Recovering/Resolving]
  - Gout [Not Recovered/Not Resolved]
